FAERS Safety Report 22955692 (Version 4)
Quarter: 2023Q4

REPORT INFORMATION
  Report Type: Spontaneous
  Country: US (occurrence: US)
  Receive Date: 20230918
  Receipt Date: 20231219
  Transmission Date: 20240110
  Serious: Yes (Other)
  Sender: FDA-Public Use
  Company Number: US-BRISTOL-MYERS SQUIBB COMPANY-2023-131734

PATIENT
  Age: 61 Year
  Sex: Male

DRUGS (2)
  1. OPDIVO [Suspect]
     Active Substance: NIVOLUMAB
     Indication: Rectal cancer
     Dosage: 240MG AND 2 [VIALS OF] 120MG FOR TWO DATES OF SERVICE
     Route: 042
     Dates: start: 20230516, end: 20230808
  2. REGORAFENIB [Concomitant]
     Active Substance: REGORAFENIB
     Indication: Product used for unknown indication
     Dosage: 120 MG
     Route: 048
     Dates: start: 20230516, end: 20230829

REACTIONS (2)
  - Malignant neoplasm progression [Unknown]
  - Off label use [Unknown]
